FAERS Safety Report 10606773 (Version 2)
Quarter: 2015Q1

REPORT INFORMATION
  Report Type: Spontaneous
  Country: CA (occurrence: CA)
  Receive Date: 20141125
  Receipt Date: 20150311
  Transmission Date: 20150720
  Serious: Yes (Other)
  Sender: FDA-Public Use
  Company Number: CA-MALLINCKRODT-T201404148

PATIENT
  Age: 36 Year
  Sex: Female
  Weight: 57 kg

DRUGS (3)
  1. METHADOSE [Suspect]
     Active Substance: METHADONE HYDROCHLORIDE
     Dosage: 1 ML, 1 EVERY 1 DAY(S)
     Route: 048
     Dates: end: 20140616
  2. METHADOSE [Suspect]
     Active Substance: METHADONE HYDROCHLORIDE
     Indication: ANALGESIC THERAPY
     Dosage: 2.5 ML, 2 EVERY 1 DAY(S)
     Route: 048
     Dates: start: 20140521
  3. LYRICA [Concomitant]
     Active Substance: PREGABALIN

REACTIONS (6)
  - Withdrawal syndrome [Not Recovered/Not Resolved]
  - Constipation [Not Recovered/Not Resolved]
  - Flatulence [Not Recovered/Not Resolved]
  - Product use issue [Not Recovered/Not Resolved]
  - Abdominal distension [Not Recovered/Not Resolved]
  - Drug ineffective [Not Recovered/Not Resolved]

NARRATIVE: CASE EVENT DATE: 20140521
